FAERS Safety Report 7354576-5 (Version None)
Quarter: 2011Q1

REPORT INFORMATION
  Report Type: 
  Country: None (occurrence: None)
  Receive Date: 20110316
  Receipt Date: 20100602
  Transmission Date: 20110831
  Serious: Yes (Hospitalization, Other)
  Sender: FDA-Public Use
  Company Number: US-BAYER-US-2007-017413

PATIENT
  Sex: Female
  Weight: 59.864 kg

DRUGS (8)
  1. PLAVIX [Concomitant]
     Route: 048
  2. SARAFEM [Concomitant]
     Dosage: 20 MG, UNK
     Route: 048
  3. YASMIN [Suspect]
     Indication: PREMENSTRUAL SYNDROME
  4. YAZ [Suspect]
     Indication: PRODUCT USED FOR UNKNOWN INDICATION
  5. YASMIN [Suspect]
     Indication: ORAL CONTRACEPTION
     Dosage: UNK UNK, UNK
     Dates: start: 20021001, end: 20060901
  6. ATENOLOL [Concomitant]
     Route: 048
  7. ASCORBIC ACID [Concomitant]
     Dosage: 500 MG, UNK
     Route: 048
  8. LEVOTHYROXINE [Concomitant]
     Indication: HYPOTHYROIDISM
     Dosage: 50 ?G, UNK
     Route: 048
     Dates: start: 20060101

REACTIONS (5)
  - HEMIPARESIS [None]
  - SPEECH DISORDER [None]
  - TRANSIENT ISCHAEMIC ATTACK [None]
  - CEREBROVASCULAR ACCIDENT [None]
  - THROMBOSIS [None]
